FAERS Safety Report 7860376-X (Version None)
Quarter: 2011Q4

REPORT INFORMATION
  Report Type: 
  Country: None (occurrence: None)
  Receive Date: 20111027
  Receipt Date: 20111018
  Transmission Date: 20120403
  Serious: Yes (Death)
  Sender: FDA-Public Use
  Company Number: PHHY2011JP47861

PATIENT
  Age: 62 Year
  Sex: Male

DRUGS (2)
  1. SANDOSTATIN [Suspect]
     Indication: ASCITES
     Dosage: UNK UKN, UNK
     Route: 042
  2. ANTIBIOTICS [Concomitant]
     Indication: PNEUMONIA

REACTIONS (3)
  - POST PROCEDURAL INFECTION [None]
  - SEPTIC SHOCK [None]
  - HEPATIC CIRRHOSIS [None]
